FAERS Safety Report 9193603 (Version 1)
Quarter: 2013Q1

REPORT INFORMATION
  Report Type: Spontaneous
  Country: US (occurrence: None)
  Receive Date: 20130325
  Receipt Date: 20130325
  Transmission Date: 20140127
  Serious: Yes (Hospitalization)
  Sender: FDA-Public Use
  Company Number: None

PATIENT
  Age: 69 Year
  Sex: Female

DRUGS (2)
  1. RISPERIDONE [Suspect]
     Indication: SCHIZOPHRENIA
  2. RISPERIDONE [Suspect]
     Indication: DEMENTIA

REACTIONS (18)
  - Neuroleptic malignant syndrome [None]
  - Rhabdomyolysis [None]
  - Mental status changes [None]
  - Aphasia [None]
  - Masked facies [None]
  - Tremor [None]
  - Balance disorder [None]
  - Gait disturbance [None]
  - Fall [None]
  - Blood potassium decreased [None]
  - Blood magnesium decreased [None]
  - Stupor [None]
  - Eye movement disorder [None]
  - Hyperreflexia [None]
  - Clonus [None]
  - Hypokinesia [None]
  - Extrapyramidal disorder [None]
  - Cogwheel rigidity [None]
